FAERS Safety Report 16793729 (Version 1)
Quarter: 2019Q3

REPORT INFORMATION
  Report Type: Spontaneous
  Country: ES (occurrence: ES)
  Receive Date: 20190911
  Receipt Date: 20190911
  Transmission Date: 20191005
  Serious: Yes (Other)
  Sender: FDA-Public Use
  Company Number: ES-TEVA-2019-ES-1104023

PATIENT
  Age: 3 Year
  Sex: Female
  Weight: 12 kg

DRUGS (2)
  1. OMEPRAZOL (2141A) [Suspect]
     Active Substance: OMEPRAZOLE
     Route: 048
     Dates: start: 20161201
  2. FOSFOMICINA (1599A) [Concomitant]
     Active Substance: FOSFOMYCIN
     Indication: VESICOURETERIC REFLUX
     Dosage: 5 ML EVERY 12 HOURS

REACTIONS (1)
  - Hypertrichosis [Unknown]

NARRATIVE: CASE EVENT DATE: 2019
